FAERS Safety Report 5149514-X (Version None)
Quarter: 2006Q4

REPORT INFORMATION
  Report Type: 
  Country: None (occurrence: None)
  Receive Date: 20061113
  Receipt Date: 20060302
  Transmission Date: 20070319
  Serious: No
  Sender: FDA-Public Use
  Company Number: US-GLAXOSMITHKLINE-A0595916A

PATIENT
  Sex: Female

DRUGS (3)
  1. COREG [Suspect]
     Indication: HYPERTENSION
     Dosage: 12.5MG TWICE PER DAY
     Route: 048
     Dates: end: 20060227
  2. UNIVASC [Concomitant]
  3. WATER PILL [Concomitant]

REACTIONS (2)
  - FLUSHING [None]
  - SKIN WARM [None]
